FAERS Safety Report 6237131-X (Version None)
Quarter: 2009Q2

REPORT INFORMATION
  Report Type: 
  Country: None (occurrence: None)
  Receive Date: 20090619
  Receipt Date: 20090421
  Transmission Date: 20091009
  Serious: No
  Sender: FDA-Public Use
  Company Number: US-ASTRAZENECA-2009UW10053

PATIENT
  Age: 73 Year
  Sex: Female
  Weight: 81.6 kg

DRUGS (5)
  1. SYMBICORT [Suspect]
     Dosage: 160/4.5, 1 PUFF
     Route: 055
  2. PROAIR HFA [Concomitant]
  3. LEVOTHYROXINE SODIUM [Concomitant]
  4. CEPHALEXIN [Concomitant]
  5. OXYBUTIN [Concomitant]

REACTIONS (4)
  - GLOSSODYNIA [None]
  - INCREASED UPPER AIRWAY SECRETION [None]
  - LIP PAIN [None]
  - STOMATITIS [None]
